FAERS Safety Report 21625473 (Version 4)
Quarter: 2024Q2

REPORT INFORMATION
  Report Type: Report from Study
  Country: US (occurrence: US)
  Receive Date: 20221122
  Receipt Date: 20240522
  Transmission Date: 20240716
  Serious: Yes (Hospitalization)
  Sender: FDA-Public Use
  Company Number: US-BAUSCH-BL-2022-025640

PATIENT
  Age: 74 Year
  Sex: Female

DRUGS (1)
  1. XIFAXAN [Suspect]
     Active Substance: RIFAXIMIN
     Indication: Hepatic encephalopathy
     Dosage: DURATION 32 MONTHS
     Route: 048
     Dates: start: 20210930

REACTIONS (6)
  - Localised infection [Unknown]
  - Inflammation [Unknown]
  - Peripheral swelling [Unknown]
  - Neoplasm of appendix [Recovered/Resolved]
  - Erythema [Unknown]
  - Rectal haemorrhage [Unknown]

NARRATIVE: CASE EVENT DATE: 20221017
